FAERS Safety Report 6314076-8 (Version None)
Quarter: 2009Q3

REPORT INFORMATION
  Report Type: 
  Country: None (occurrence: None)
  Receive Date: 20090814
  Receipt Date: 20090806
  Transmission Date: 20100115
  Serious: Yes (Other)
  Sender: FDA-Public Use
  Company Number: B0583088A

PATIENT
  Sex: Female

DRUGS (2)
  1. WELLBUTRIN XL [Suspect]
     Indication: DEPRESSION
     Dosage: 150 MG PER DAY
     Dates: start: 20090525, end: 20090606
  2. DULOXETINE HYDROCHLORIDE [Concomitant]

REACTIONS (8)
  - ECZEMA [None]
  - LYMPHADENOPATHY [None]
  - OROPHARYNGEAL BLISTERING [None]
  - PHARYNGEAL OEDEMA [None]
  - RASH [None]
  - SCAB [None]
  - SKIN DISORDER [None]
  - SKIN HYPERTROPHY [None]
